FAERS Safety Report 23575323 (Version 3)
Quarter: 2024Q1

REPORT INFORMATION
  Report Type: Spontaneous
  Country: KR (occurrence: KR)
  Receive Date: 20240228
  Receipt Date: 20240311
  Transmission Date: 20240410
  Serious: Yes (Other)
  Sender: FDA-Public Use
  Company Number: KR-LUNDBECK-DKLU3074495

PATIENT
  Age: 31 Year
  Sex: Male

DRUGS (4)
  1. LEXAPRO [Suspect]
     Active Substance: ESCITALOPRAM OXALATE
     Indication: Depression
     Route: 065
  2. LEXAPRO [Suspect]
     Active Substance: ESCITALOPRAM OXALATE
     Indication: Depression
     Route: 065
  3. LEXAPRO [Suspect]
     Active Substance: ESCITALOPRAM OXALATE
     Indication: Depression
     Route: 065
  4. ZOLOFT [Concomitant]
     Active Substance: SERTRALINE HYDROCHLORIDE
     Indication: Depression
     Route: 065

REACTIONS (8)
  - Muscle twitching [Recovered/Resolved]
  - Inappropriate schedule of product administration [Unknown]
  - Therapy cessation [Unknown]
  - Change in seizure presentation [Recovered/Resolved]
  - Chills [Unknown]
  - Somnolence [Unknown]
  - Increased need for sleep [Unknown]
  - Cold sweat [Unknown]
